FAERS Safety Report 11096083 (Version 1)
Quarter: 2015Q2

REPORT INFORMATION
  Report Type: Spontaneous
  Country: US (occurrence: None)
  Receive Date: 20150506
  Receipt Date: 20150506
  Transmission Date: 20150821
  Serious: No
  Sender: FDA-Public Use
  Company Number: None

PATIENT
  Age: 60 Year
  Sex: Female

DRUGS (3)
  1. GUMMY MULTI-VITAMIN [Concomitant]
  2. SUMATRIPTAN, 100MG, RANBAXY [Suspect]
     Active Substance: SUMATRIPTAN
     Indication: MIGRAINE
     Dosage: 20MG, 6 NASAL SPRAY WANTS, ONE TO TWO TIMES DAILY AS HEADACHE, BY NOSE
     Route: 045
     Dates: start: 20150415, end: 20150415
  3. TYLENOL [Suspect]
     Active Substance: ACETAMINOPHEN

REACTIONS (7)
  - Lip swelling [None]
  - Dizziness [None]
  - Headache [None]
  - Drug ineffective [None]
  - Somnolence [None]
  - Abdominal discomfort [None]
  - Swollen tongue [None]

NARRATIVE: CASE EVENT DATE: 20150415
